FAERS Safety Report 6691321-0 (Version None)
Quarter: 2010Q2

REPORT INFORMATION
  Report Type: 
  Country: None (occurrence: None)
  Receive Date: 20100422
  Receipt Date: 20100413
  Transmission Date: 20101027
  Serious: Yes (Other)
  Sender: FDA-Public Use
  Company Number: CH-JNJFOC-20100403966

PATIENT
  Age: 50 Year
  Sex: Male

DRUGS (3)
  1. REMICADE [Suspect]
     Indication: ANKYLOSING SPONDYLITIS
     Dosage: DOSE RECEIVED 03-MAR-2010
     Route: 042
  2. SINGULAIR [Concomitant]
  3. SYMBICORT [Concomitant]

REACTIONS (2)
  - ANOSMIA [None]
  - ASTHMA [None]
